FAERS Safety Report 25378468 (Version 1)
Quarter: 2025Q2

REPORT INFORMATION
  Report Type: Spontaneous
  Country: US (occurrence: None)
  Receive Date: 20250529
  Receipt Date: 20250529
  Transmission Date: 20250717
  Serious: Yes (Hospitalization)
  Sender: FDA-CTU
  Company Number: None

PATIENT
  Sex: Female

DRUGS (2)
  1. OPSUMIT [Suspect]
     Active Substance: MACITENTAN
     Indication: Pulmonary arterial hypertension
     Dosage: FREQUENCY : DAILY;?
     Route: 048
     Dates: start: 20231001
  2. UPTRAVI [Suspect]
     Active Substance: SELEXIPAG

REACTIONS (10)
  - Diarrhoea [None]
  - Chest pain [None]
  - Electrocardiogram abnormal [None]
  - Hypotension [None]
  - Therapy interrupted [None]
  - Mood altered [None]
  - Fatigue [None]
  - Peripheral swelling [None]
  - Joint swelling [None]
  - Peripheral swelling [None]
